FAERS Safety Report 12253638 (Version 1)
Quarter: 2016Q2

REPORT INFORMATION
  Report Type: Spontaneous
  Country: CA (occurrence: CA)
  Receive Date: 20160411
  Receipt Date: 20160411
  Transmission Date: 20160815
  Serious: Yes (Hospitalization)
  Sender: FDA-Public Use
  Company Number: CA-LPDUSPRD-20160297

PATIENT
  Age: 33 Year
  Sex: Female

DRUGS (5)
  1. DROSPIRENONE/ETHINYL ESTRADIOL TABLET [Concomitant]
  2. VENOFER [Suspect]
     Active Substance: IRON SUCROSE
     Dosage: 300 MG
     Route: 042
  3. CELECOXIB CAPSULE [Concomitant]
  4. GABAPENTIN. [Concomitant]
     Active Substance: GABAPENTIN
  5. PANTOPRAZOLE [Concomitant]
     Active Substance: PANTOPRAZOLE SODIUM

REACTIONS (8)
  - Back pain [Unknown]
  - Hyperhidrosis [Unknown]
  - Muscle tightness [Unknown]
  - Presyncope [Unknown]
  - Dizziness [Unknown]
  - Chest pain [Unknown]
  - Hypotension [Unknown]
  - Nausea [Unknown]
